FAERS Safety Report 17718315 (Version 3)
Quarter: 2020Q2

REPORT INFORMATION
  Report Type: Spontaneous
  Country: IT (occurrence: IT)
  Receive Date: 20200428
  Receipt Date: 20200514
  Transmission Date: 20200714
  Serious: Yes (Death, Other)
  Sender: FDA-Public Use
  Company Number: IT-PFIZER INC-2020162598

PATIENT
  Age: 66 Year
  Sex: Male

DRUGS (1)
  1. SILDENAFIL CITRATE. [Suspect]
     Active Substance: SILDENAFIL CITRATE
     Dosage: 50-100 MG 30-60 MIN BEFORE SEX
     Route: 048

REACTIONS (3)
  - Cardiac tamponade [Fatal]
  - Drug abuse [Unknown]
  - Pericardial haemorrhage [Fatal]
